FAERS Safety Report 25379642 (Version 1)
Quarter: 2025Q2

REPORT INFORMATION
  Report Type: Spontaneous
  Country: US (occurrence: US)
  Receive Date: 20250530
  Receipt Date: 20250530
  Transmission Date: 20250717
  Serious: No
  Sender: MYLAN
  Company Number: US-MYLANLABS-2025M1040426

PATIENT
  Sex: Female

DRUGS (4)
  1. TRAVOPROST [Suspect]
     Active Substance: TRAVOPROST
     Indication: Glaucoma
     Dosage: 0.004 PERCENT, QD (APPLIED TO BOTH EYES ONCE A DAY)
  2. TRAVOPROST [Suspect]
     Active Substance: TRAVOPROST
     Dosage: 0.004 PERCENT, QD (APPLIED TO BOTH EYES ONCE A DAY)
     Route: 047
  3. TRAVOPROST [Suspect]
     Active Substance: TRAVOPROST
     Dosage: 0.004 PERCENT, QD (APPLIED TO BOTH EYES ONCE A DAY)
     Route: 047
  4. TRAVOPROST [Suspect]
     Active Substance: TRAVOPROST
     Dosage: 0.004 PERCENT, QD (APPLIED TO BOTH EYES ONCE A DAY)

REACTIONS (1)
  - Drug ineffective [Unknown]

NARRATIVE: CASE EVENT DATE: 20250101
